FAERS Safety Report 4288630-1 (Version None)
Quarter: 2004Q1

REPORT INFORMATION
  Report Type: 
  Country: None (occurrence: None)
  Receive Date: 20040209
  Receipt Date: 20030714
  Transmission Date: 20041129
  Serious: Yes (Other)
  Sender: FDA-Public Use
  Company Number: GB-BRISTOL-MYERS SQUIBB COMPANY-12323903

PATIENT
  Age: 31 Year
  Sex: Female

DRUGS (3)
  1. DIDANOSINE [Suspect]
  2. STAVUDINE [Suspect]
     Dates: start: 20010101
  3. VIRAMUNE [Suspect]

REACTIONS (5)
  - COMPLICATIONS OF MATERNAL EXPOSURE TO THERAPEUTIC DRUGS [None]
  - LACTIC ACIDOSIS [None]
  - NORMAL NEWBORN [None]
  - PANCREATITIS [None]
  - PREGNANCY [None]
